FAERS Safety Report 8506331 (Version 4)
Quarter: 2020Q3

REPORT INFORMATION
  Report Type: Spontaneous
  Country: PT (occurrence: PT)
  Receive Date: 20120412
  Receipt Date: 20200730
  Transmission Date: 20201103
  Serious: Yes (Hospitalization)
  Sender: FDA-Public Use
  Company Number: PHHY2012PT029673

PATIENT
  Age: 50 Year
  Sex: Female

DRUGS (21)
  1. PREDNISONE. [Suspect]
     Active Substance: PREDNISONE
     Dosage: 10 MG, QD (5}10)
     Route: 065
  2. ALENDRONIC ACID [Suspect]
     Active Substance: ALENDRONIC ACID
     Indication: RHEUMATOID ARTHRITIS
     Dosage: 70 MG, QW
     Route: 065
     Dates: start: 2003
  3. RITUXIMAB. [Suspect]
     Active Substance: RITUXIMAB
     Dosage: UNK
     Route: 042
     Dates: start: 201003
  4. PREDNISONE. [Suspect]
     Active Substance: PREDNISONE
     Indication: RHEUMATOID ARTHRITIS
     Dosage: UNK
     Route: 065
     Dates: start: 2003
  5. ALENDRONIC ACID [Suspect]
     Active Substance: ALENDRONIC ACID
     Dosage: UNK UNK, QD
     Route: 065
  6. METHOTREXATE. [Suspect]
     Active Substance: METHOTREXATE
     Dosage: 10 MG, QW
     Route: 065
  7. SULPHASALAZINE [Suspect]
     Active Substance: SULFASALAZINE
     Indication: RHEUMATOID ARTHRITIS
     Dosage: 1.5 G, QD
     Route: 065
  8. HYDROXYCHLOROQUINE [Concomitant]
     Active Substance: HYDROXYCHLOROQUINE
     Indication: RHEUMATOID ARTHRITIS
     Dosage: 400 MG, QD
     Route: 065
     Dates: start: 199611
  9. ADALIMUMAB [Suspect]
     Active Substance: ADALIMUMAB
     Indication: RHEUMATOID ARTHRITIS
     Dosage: 40 MG EVERY OTHER WEEK
     Route: 058
     Dates: start: 200304
  10. METHOTREXATE. [Suspect]
     Active Substance: METHOTREXATE
     Indication: RHEUMATOID ARTHRITIS
     Dosage: 7.5 MG, QW
     Route: 065
     Dates: start: 2004, end: 2006
  11. HYDROXYCHLOROQUINE [Concomitant]
     Active Substance: HYDROXYCHLOROQUINE
     Dosage: UNK
     Route: 065
     Dates: start: 199611
  12. CALCIUM [Concomitant]
     Active Substance: CALCIUM
     Indication: RHEUMATOID ARTHRITIS
     Dosage: 100 MG, QD
     Route: 065
  13. PREDNISOLONE. [Suspect]
     Active Substance: PREDNISOLONE
     Indication: RHEUMATOID ARTHRITIS
     Dosage: 10 MG, QD (5 MG QD }10 MG QD)
     Route: 065
  14. METHOTREXATE. [Suspect]
     Active Substance: METHOTREXATE
     Dosage: 7.5 MG, QW
     Route: 065
     Dates: start: 199509, end: 199709
  15. HYDROXYCHLOROQUINE [Concomitant]
     Active Substance: HYDROXYCHLOROQUINE
     Dosage: 400 MG, QD
     Route: 065
     Dates: start: 199712
  16. AZATHIOPRINE. [Suspect]
     Active Substance: AZATHIOPRINE
     Indication: RHEUMATOID ARTHRITIS
     Dosage: FREQUENCY: EVERYDAY (QD)
     Route: 065
     Dates: start: 199712, end: 200406
  17. VITAMIN D [Concomitant]
     Active Substance: VITAMIN D NOS
     Indication: RHEUMATOID ARTHRITIS
     Dosage: 100 MG, QD
     Route: 065
  18. METHOTREXATE. [Suspect]
     Active Substance: METHOTREXATE
     Dosage: 5 MG, QW
     Route: 065
     Dates: start: 199611, end: 1997
  19. RITUXIMAB. [Suspect]
     Active Substance: RITUXIMAB
     Indication: RHEUMATOID ARTHRITIS
     Dosage: 1000 MG, BIW
     Route: 042
     Dates: start: 200704
  20. ETANERCEPT [Suspect]
     Active Substance: ETANERCEPT
     Indication: RHEUMATOID ARTHRITIS
     Dosage: UNK UNK, QD
     Route: 065
     Dates: start: 200603
  21. HYDROXYCHLOROQUINE [Concomitant]
     Active Substance: HYDROXYCHLOROQUINE
     Dosage: UNK, QD
     Route: 065
     Dates: start: 1995

REACTIONS (18)
  - Ganglioneuroma [Recovered/Resolved]
  - Nausea [Unknown]
  - Weight decreased [Unknown]
  - Hepatic steatosis [Unknown]
  - Steatorrhoea [Unknown]
  - Primary biliary cholangitis [Unknown]
  - Bone pain [Unknown]
  - Aphthous ulcer [Unknown]
  - Vomiting [Unknown]
  - Rib fracture [Unknown]
  - Fracture [Unknown]
  - Chest pain [Unknown]
  - Wrist fracture [Unknown]
  - Mucosal inflammation [Unknown]
  - Pyrexia [Recovered/Resolved]
  - Sjogren^s syndrome [Unknown]
  - Multiple fractures [Unknown]
  - Cholestasis [Unknown]

NARRATIVE: CASE EVENT DATE: 200806
